FAERS Safety Report 23340149 (Version 3)
Quarter: 2024Q1

REPORT INFORMATION
  Report Type: Report from Study
  Country: CA (occurrence: CA)
  Receive Date: 20231227
  Receipt Date: 20240119
  Transmission Date: 20240410
  Serious: Yes (Other)
  Sender: FDA-Public Use
  Company Number: CA-AMGEN-CANSL2023213959

PATIENT
  Age: 70 Year
  Sex: Female

DRUGS (2)
  1. MVASI [Suspect]
     Active Substance: BEVACIZUMAB-AWWB
     Indication: Small intestine carcinoma
     Dosage: 400 MILLIGRAM, Q2WK
     Route: 042
     Dates: start: 20231019
  2. MVASI [Suspect]
     Active Substance: BEVACIZUMAB-AWWB
     Indication: Colorectal cancer metastatic
     Dosage: 400 MILLIGRAM, Q2WK
     Route: 042

REACTIONS (4)
  - Kidney infection [Unknown]
  - Weight decreased [Unknown]
  - Nausea [Recovered/Resolved]
  - Vomiting [Recovered/Resolved]

NARRATIVE: CASE EVENT DATE: 20230101
